FAERS Safety Report 8768957 (Version 1)
Quarter: 2012Q4

REPORT INFORMATION
  Report Type: 
  Country: US (occurrence: US)
  Receive Date: 20120904
  Receipt Date: 20120904
  Transmission Date: 20130627
  Serious: Yes (Hospitalization, Disabling, Other)
  Sender: FDA-Public Use
  Company Number: US-009507513-1106USA01022

PATIENT

DRUGS (3)
  1. FOSAMAX [Suspect]
     Indication: OSTEOPOROSIS
     Dosage: 10 mg, qd
     Route: 048
     Dates: start: 199801
  2. FOSAMAX [Suspect]
     Dosage: 70 mg, qd
     Route: 048
     Dates: start: 20070718
  3. FOSAMAX [Suspect]
     Dosage: 70 mg, QW
     Route: 048
     Dates: end: 20100517

REACTIONS (16)
  - Femur fracture [Unknown]
  - Open reduction of fracture [Unknown]
  - Pain in extremity [Not Recovered/Not Resolved]
  - Hypokalaemia [Unknown]
  - Fall [Unknown]
  - Fracture nonunion [Unknown]
  - Hypertension [Unknown]
  - Hypercholesterolaemia [Unknown]
  - Renal cyst [Unknown]
  - Angiomyolipoma [Unknown]
  - Large intestine polyp [Unknown]
  - Inappropriate schedule of drug administration [Unknown]
  - Breast calcifications [Unknown]
  - Impaired healing [Unknown]
  - Sjogren^s syndrome [Unknown]
  - Visual impairment [Unknown]
